FAERS Safety Report 7197652-2 (Version None)
Quarter: 2010Q4

REPORT INFORMATION
  Report Type: 
  Country: None (occurrence: None)
  Receive Date: 20101227
  Receipt Date: 20101217
  Transmission Date: 20110411
  Serious: Yes (Other)
  Sender: FDA-Public Use
  Company Number: FR-MILLENNIUM PHARMACEUTICALS, INC.-2010-06284

PATIENT

DRUGS (2)
  1. VELCADE [Suspect]
     Indication: MULTIPLE MYELOMA
     Dosage: 1.9 MG, UNK
     Route: 042
     Dates: start: 20100920, end: 20101105
  2. DEXAMETHASONE [Suspect]

REACTIONS (1)
  - TYPE 1 DIABETES MELLITUS [None]
